FAERS Safety Report 12170529 (Version 1)
Quarter: 2016Q1

REPORT INFORMATION
  Report Type: Spontaneous
  Country: US (occurrence: None)
  Receive Date: 20160310
  Receipt Date: 20160310
  Transmission Date: 20160526
  Serious: Yes (Other)
  Sender: FDA-Public Use
  Company Number: None

PATIENT
  Age: 54 Year
  Sex: Female
  Weight: 120.2 kg

DRUGS (3)
  1. JOINTFLEX [Suspect]
     Active Substance: CAMPHOR (SYNTHETIC)
     Indication: BACK PAIN
     Route: 061
     Dates: start: 20160303, end: 20160304
  2. CENTRUM MULTIVITAMIN GUMMIES [Concomitant]
  3. NATUREMADE VITAMELTS B-12 [Concomitant]

REACTIONS (6)
  - Discomfort [None]
  - Dysgeusia [None]
  - Paraesthesia [None]
  - Malaise [None]
  - Feeling cold [None]
  - Nausea [None]

NARRATIVE: CASE EVENT DATE: 20160304
